FAERS Safety Report 5469937-9 (Version None)
Quarter: 2007Q3

REPORT INFORMATION
  Report Type: 
  Country: None (occurrence: None)
  Receive Date: 20070927
  Receipt Date: 20070206
  Transmission Date: 20080115
  Serious: No
  Sender: FDA-Public Use
  Company Number: US-AMGEN-KDL210008

PATIENT
  Sex: Male

DRUGS (12)
  1. NEUPOGEN [Suspect]
     Indication: NEUTROPENIA
     Dates: start: 20010301
  2. MEPRON [Concomitant]
  3. VALTREX [Concomitant]
  4. NEXIUM [Concomitant]
  5. COUMADIN [Concomitant]
  6. PROZAC [Concomitant]
  7. XANAX [Concomitant]
  8. PRED FORTE [Concomitant]
  9. COSOPT [Concomitant]
  10. ALPHAGAN [Concomitant]
  11. TRAVATAN [Concomitant]
  12. UNSPECIFIED MEDICATION [Concomitant]
     Route: 047

REACTIONS (1)
  - DRUG INEFFECTIVE [None]
